FAERS Safety Report 5885718-6 (Version None)
Quarter: 2008Q3

REPORT INFORMATION
  Report Type: 
  Country: None (occurrence: None)
  Receive Date: 20080916
  Receipt Date: 20080904
  Transmission Date: 20090109
  Serious: Yes (Death, Hospitalization)
  Sender: FDA-Public Use
  Company Number: US-ELI_LILLY_AND_COMPANY-US200808004435

PATIENT
  Age: 79 Year
  Sex: Male

DRUGS (8)
  1. BYETTA [Suspect]
     Indication: TYPE 2 DIABETES MELLITUS
     Dosage: 10 UG, 2/D
     Route: 058
     Dates: start: 20061001, end: 20070101
  2. BYETTA [Suspect]
     Dosage: 10 UG, 2/D
     Route: 058
     Dates: start: 20070101, end: 20070401
  3. LANOXIN [Concomitant]
     Indication: ATRIAL FIBRILLATION
     Dosage: 0.25 MG, UNKNOWN
     Route: 048
     Dates: end: 20070917
  4. COUMADIN [Concomitant]
     Indication: ATRIAL FIBRILLATION
     Dosage: 4 MG, UNKNOWN
     Route: 048
     Dates: end: 20070917
  5. ZOCOR [Concomitant]
     Indication: HYPERLIPIDAEMIA
     Dosage: 10 MG, UNKNOWN
     Route: 048
     Dates: end: 20070917
  6. DOMPERIDONE [Concomitant]
     Indication: IMPAIRED GASTRIC EMPTYING
     Dosage: 20 MG, 2/D
     Route: 048
     Dates: start: 20070601, end: 20070917
  7. OMEPRAZOLE [Concomitant]
     Indication: IMPAIRED GASTRIC EMPTYING
     Dosage: 40 MG, UNKNOWN
     Route: 048
     Dates: start: 20070601, end: 20070917
  8. SODIUM BICARBONATE [Concomitant]
     Indication: IMPAIRED GASTRIC EMPTYING
     Dosage: 40 MG, UNKNOWN
     Route: 048
     Dates: start: 20070601, end: 20070917

REACTIONS (1)
  - PANCREATIC CARCINOMA [None]
